FAERS Safety Report 5508649-X (Version None)
Quarter: 2007Q4

REPORT INFORMATION
  Report Type: 
  Country: None (occurrence: None)
  Receive Date: 20071031
  Receipt Date: 20070726
  Transmission Date: 20080405
  Serious: No
  Sender: FDA-Public Use
  Company Number: 2007PV033200

PATIENT
  Age: 66 Year
  Sex: Female

DRUGS (5)
  1. SYMLIN [Suspect]
     Indication: TYPE 2 DIABETES MELLITUS
     Dosage: 120 MCG;TID;SC : 30 MCG;TID;SC
     Route: 058
     Dates: start: 20070718, end: 20070719
  2. SYMLIN [Suspect]
     Indication: TYPE 2 DIABETES MELLITUS
     Dosage: 120 MCG;TID;SC : 30 MCG;TID;SC
     Route: 058
     Dates: start: 20070720
  3. SYMLIN [Suspect]
  4. REGULAR INSULIN [Concomitant]
  5. METFORMIN HCL [Concomitant]

REACTIONS (2)
  - DIARRHOEA [None]
  - NAUSEA [None]
